FAERS Safety Report 5488635-9 (Version None)
Quarter: 2007Q4

REPORT INFORMATION
  Report Type: 
  Country: None (occurrence: None)
  Receive Date: 20071017
  Receipt Date: 20061206
  Transmission Date: 20080405
  Serious: No
  Sender: FDA-Public Use
  Company Number: A0630640A

PATIENT
  Age: 11 Month
  Sex: Male

DRUGS (2)
  1. CEFTIN [Suspect]
     Indication: OTITIS MEDIA ACUTE
     Dosage: 3ML TWICE PER DAY
     Route: 048
     Dates: start: 20061206, end: 20061206
  2. ATARAX [Concomitant]

REACTIONS (3)
  - IRRITABILITY [None]
  - PRURITUS [None]
  - VOMITING [None]
